FAERS Safety Report 23219337 (Version 1)
Quarter: 2023Q4

REPORT INFORMATION
  Report Type: Spontaneous
  Country: BR (occurrence: BR)
  Receive Date: 20231122
  Receipt Date: 20231122
  Transmission Date: 20240110
  Serious: Yes (Other)
  Sender: FDA-Public Use
  Company Number: BR-AMERICAN REGENT INC-2023002692

PATIENT
  Age: 88 Year
  Sex: Female

DRUGS (1)
  1. VENOFER [Suspect]
     Active Substance: IRON SUCROSE
     Indication: Anaemia
     Dosage: UNK
     Route: 042

REACTIONS (2)
  - Neoplasm malignant [Unknown]
  - Product availability issue [Unknown]
